FAERS Safety Report 10421246 (Version 2)
Quarter: 2014Q3

REPORT INFORMATION
  Report Type: Spontaneous
  Country: US (occurrence: US)
  Receive Date: 20140830
  Receipt Date: 20140830
  Transmission Date: 20150326
  Serious: Yes (Hospitalization, Other)
  Sender: FDA-Public Use
  Company Number: US-009507513-2011SP022677

PATIENT
  Sex: Female
  Weight: 81.65 kg

DRUGS (1)
  1. NUVARING [Suspect]
     Active Substance: ETHINYL ESTRADIOL\ETONOGESTREL
     Indication: CONTRACEPTION
     Route: 067
     Dates: start: 200511, end: 200906

REACTIONS (10)
  - Deep vein thrombosis [Recovered/Resolved]
  - Pulmonary infarction [Unknown]
  - Abdominoplasty [Unknown]
  - Pulmonary embolism [Recovering/Resolving]
  - Road traffic accident [Unknown]
  - Sinusitis [Unknown]
  - Post concussion syndrome [Unknown]
  - Leukocytosis [Recovered/Resolved]
  - Chest pain [Recovered/Resolved]
  - Dyspnoea [Unknown]

NARRATIVE: CASE EVENT DATE: 200810
